FAERS Safety Report 10977527 (Version 1)
Quarter: 2015Q2

REPORT INFORMATION
  Report Type: Spontaneous
  Country: US (occurrence: None)
  Receive Date: 20150401
  Receipt Date: 20150401
  Transmission Date: 20150821
  Serious: Yes (Other)
  Sender: FDA-Public Use
  Company Number: None

PATIENT
  Age: 74 Year
  Sex: Female
  Weight: 68.04 kg

DRUGS (8)
  1. CELECOXIB. [Suspect]
     Active Substance: CELECOXIB
     Indication: ARTHRALGIA
     Dosage: 1 CAP
     Route: 048
     Dates: start: 20150312, end: 20150331
  2. NEURONTIN [Concomitant]
     Active Substance: GABAPENTIN
  3. CENTRUM SILVER MULTIVITAMIN/MINERAL [Concomitant]
  4. CALCUIM ANTAGONIST [Concomitant]
     Active Substance: UNSPECIFIED INGREDIENT
  5. CELECOXIB. [Concomitant]
     Active Substance: CELECOXIB
  6. KRILL OIL [Concomitant]
     Active Substance: DIETARY SUPPLEMENT
  7. VITAMIN D [Concomitant]
     Active Substance: CHOLECALCIFEROL
  8. NEXIUM [Concomitant]
     Active Substance: ESOMEPRAZOLE MAGNESIUM

REACTIONS (5)
  - Product substitution issue [None]
  - Balance disorder [None]
  - Insomnia [None]
  - Drug ineffective [None]
  - Arthralgia [None]

NARRATIVE: CASE EVENT DATE: 20150311
